FAERS Safety Report 4759569-X (Version None)
Quarter: 2005Q3

REPORT INFORMATION
  Report Type: 
  Country: None (occurrence: None)
  Receive Date: 20050831
  Receipt Date: 20050822
  Transmission Date: 20060218
  Serious: Yes (Other)
  Sender: FDA-Public Use
  Company Number: S05-USA-04041-01

PATIENT
  Age: 25 Year
  Sex: Male

DRUGS (3)
  1. CAMPRAL [Suspect]
     Indication: ALCOHOLISM
     Dosage: 666 MG TID PO
     Route: 048
     Dates: start: 20050814
  2. SEROQUEL [Concomitant]
  3. TRIAVIL [Concomitant]

REACTIONS (3)
  - CONFUSIONAL STATE [None]
  - GRAND MAL CONVULSION [None]
  - POSTICTAL STATE [None]
